FAERS Safety Report 25444222 (Version 1)
Quarter: 2025Q2

REPORT INFORMATION
  Report Type: Spontaneous
  Country: US (occurrence: US)
  Receive Date: 20250617
  Receipt Date: 20250617
  Transmission Date: 20250717
  Serious: No
  Sender: ELI LILLY AND COMPANY
  Company Number: US-ELI_LILLY_AND_COMPANY-US202506011460

PATIENT
  Age: 67 Year
  Sex: Female

DRUGS (32)
  1. ZEPBOUND [Suspect]
     Active Substance: TIRZEPATIDE
     Indication: Weight control
     Dosage: 2.5 MG, WEEKLY (1/W)
     Route: 065
     Dates: start: 20250416, end: 20250521
  2. ZEPBOUND [Suspect]
     Active Substance: TIRZEPATIDE
     Indication: Weight control
     Dosage: 2.5 MG, WEEKLY (1/W)
     Route: 065
     Dates: start: 20250416, end: 20250521
  3. ZEPBOUND [Suspect]
     Active Substance: TIRZEPATIDE
     Indication: Weight control
     Dosage: 2.5 MG, WEEKLY (1/W)
     Route: 065
     Dates: start: 20250416, end: 20250521
  4. ZEPBOUND [Suspect]
     Active Substance: TIRZEPATIDE
     Indication: Weight control
     Dosage: 2.5 MG, WEEKLY (1/W)
     Route: 065
     Dates: start: 20250416, end: 20250521
  5. ZEPBOUND [Suspect]
     Active Substance: TIRZEPATIDE
     Indication: Sleep apnoea syndrome
  6. ZEPBOUND [Suspect]
     Active Substance: TIRZEPATIDE
     Indication: Sleep apnoea syndrome
  7. ZEPBOUND [Suspect]
     Active Substance: TIRZEPATIDE
     Indication: Sleep apnoea syndrome
  8. ZEPBOUND [Suspect]
     Active Substance: TIRZEPATIDE
     Indication: Sleep apnoea syndrome
  9. ZEPBOUND [Suspect]
     Active Substance: TIRZEPATIDE
     Indication: Lyme disease
  10. ZEPBOUND [Suspect]
     Active Substance: TIRZEPATIDE
     Indication: Lyme disease
  11. ZEPBOUND [Suspect]
     Active Substance: TIRZEPATIDE
     Indication: Lyme disease
  12. ZEPBOUND [Suspect]
     Active Substance: TIRZEPATIDE
     Indication: Lyme disease
  13. ZEPBOUND [Suspect]
     Active Substance: TIRZEPATIDE
     Indication: Malignant melanoma
  14. ZEPBOUND [Suspect]
     Active Substance: TIRZEPATIDE
     Indication: Malignant melanoma
  15. ZEPBOUND [Suspect]
     Active Substance: TIRZEPATIDE
     Indication: Malignant melanoma
  16. ZEPBOUND [Suspect]
     Active Substance: TIRZEPATIDE
     Indication: Malignant melanoma
  17. ZEPBOUND [Suspect]
     Active Substance: TIRZEPATIDE
     Indication: Myelopathy
  18. ZEPBOUND [Suspect]
     Active Substance: TIRZEPATIDE
     Indication: Myelopathy
  19. ZEPBOUND [Suspect]
     Active Substance: TIRZEPATIDE
     Indication: Myelopathy
  20. ZEPBOUND [Suspect]
     Active Substance: TIRZEPATIDE
     Indication: Myelopathy
  21. ZEPBOUND [Suspect]
     Active Substance: TIRZEPATIDE
     Indication: Intervertebral disc protrusion
  22. ZEPBOUND [Suspect]
     Active Substance: TIRZEPATIDE
     Indication: Intervertebral disc protrusion
  23. ZEPBOUND [Suspect]
     Active Substance: TIRZEPATIDE
     Indication: Intervertebral disc protrusion
  24. ZEPBOUND [Suspect]
     Active Substance: TIRZEPATIDE
     Indication: Intervertebral disc protrusion
  25. ZEPBOUND [Suspect]
     Active Substance: TIRZEPATIDE
     Indication: Arthritis
  26. ZEPBOUND [Suspect]
     Active Substance: TIRZEPATIDE
     Indication: Arthritis
  27. ZEPBOUND [Suspect]
     Active Substance: TIRZEPATIDE
     Indication: Arthritis
  28. ZEPBOUND [Suspect]
     Active Substance: TIRZEPATIDE
     Indication: Arthritis
  29. ZEPBOUND [Suspect]
     Active Substance: TIRZEPATIDE
     Indication: Hypertension
  30. ZEPBOUND [Suspect]
     Active Substance: TIRZEPATIDE
     Indication: Hypertension
  31. ZEPBOUND [Suspect]
     Active Substance: TIRZEPATIDE
     Indication: Hypertension
  32. ZEPBOUND [Suspect]
     Active Substance: TIRZEPATIDE
     Indication: Hypertension

REACTIONS (4)
  - Headache [Unknown]
  - Fatigue [Unknown]
  - Nausea [Unknown]
  - Injection site reaction [Recovering/Resolving]

NARRATIVE: CASE EVENT DATE: 20250514
